FAERS Safety Report 12397177 (Version 1)
Quarter: 2016Q2

REPORT INFORMATION
  Report Type: Spontaneous
  Country: US (occurrence: US)
  Receive Date: 20160524
  Receipt Date: 20160524
  Transmission Date: 20160815
  Serious: No
  Sender: FDA-Public Use
  Company Number: US-BIOGEN-2016BI00225548

PATIENT

DRUGS (5)
  1. CYTOXAN [Concomitant]
     Active Substance: CYCLOPHOSPHAMIDE
  2. COPAXONE [Concomitant]
     Active Substance: GLATIRAMER ACETATE
  3. BETASERON [Concomitant]
     Active Substance: INTERFERON BETA-1B
  4. NOVANTRONE [Concomitant]
     Active Substance: MITOXANTRONE HYDROCHLORIDE
  5. TYSABRI [Suspect]
     Active Substance: NATALIZUMAB
     Indication: MULTIPLE SCLEROSIS

REACTIONS (2)
  - Progressive relapsing multiple sclerosis [Unknown]
  - General physical health deterioration [Unknown]
